FAERS Safety Report 8481889-6 (Version None)
Quarter: 2012Q3

REPORT INFORMATION
  Report Type: 
  Country: None (occurrence: None)
  Receive Date: 20120702
  Receipt Date: 20120622
  Transmission Date: 20120928
  Serious: Yes (Other)
  Sender: FDA-Public Use
  Company Number: US-ASTRAZENECA-2012SE42596

PATIENT
  Age: 53 Year
  Sex: Male

DRUGS (2)
  1. CRESTOR [Suspect]
     Route: 048
  2. ZOCOR [Concomitant]

REACTIONS (1)
  - MYOCARDIAL INFARCTION [None]
